FAERS Safety Report 20607025 (Version 2)
Quarter: 2022Q2

REPORT INFORMATION
  Report Type: Spontaneous
  Country: IN (occurrence: IN)
  Receive Date: 20220317
  Receipt Date: 20220531
  Transmission Date: 20220720
  Serious: Yes (Hospitalization, Other)
  Sender: FDA-Public Use
  Company Number: IN-PFIZER INC-2020480004

PATIENT
  Age: 49 Year
  Sex: Male

DRUGS (1)
  1. SUTENT [Suspect]
     Active Substance: SUNITINIB MALATE
     Indication: Metastatic renal cell carcinoma
     Dosage: 50 MG, 1X/DAY (FOR 2 WEEKS AND 1 WEEK OFF)
     Route: 048
     Dates: start: 20200723

REACTIONS (5)
  - Malaise [Unknown]
  - Asthenia [Unknown]
  - Butanol-extractable iodine decreased [Unknown]
  - Blood sodium decreased [Unknown]
  - Hypothyroidism [Unknown]
